FAERS Safety Report 4646607-8 (Version None)
Quarter: 2005Q2

REPORT INFORMATION
  Report Type: 
  Country: None (occurrence: None)
  Receive Date: 20050427
  Receipt Date: 20050131
  Transmission Date: 20051028
  Serious: No
  Sender: FDA-Public Use
  Company Number: US-GLAXOSMITHKLINE-A0543075A

PATIENT
  Age: 46 Year
  Sex: Male

DRUGS (6)
  1. FLOVENT [Suspect]
     Indication: ASTHMA
     Dosage: 110MCG UNKNOWN
     Route: 055
     Dates: start: 20010501
  2. ALLOPURINOL [Concomitant]
  3. TOPROL-XL [Concomitant]
  4. LIBRAX [Concomitant]
  5. COLCHICINE [Concomitant]
  6. NAPROXEN [Concomitant]

REACTIONS (3)
  - ASTHMA [None]
  - DRUG INEFFECTIVE [None]
  - PHARMACEUTICAL PRODUCT COMPLAINT [None]
